FAERS Safety Report 13858180 (Version 2)
Quarter: 2018Q1

REPORT INFORMATION
  Report Type: Report from Study
  Country: US (occurrence: US)
  Receive Date: 20170811
  Receipt Date: 20180223
  Transmission Date: 20180508
  Serious: No
  Sender: FDA-Public Use
  Company Number: US-TAKEDA-2017TUS016530

PATIENT
  Age: 60 Year
  Sex: Male
  Weight: 158.73 kg

DRUGS (4)
  1. VEDOLIZUMAB [Suspect]
     Active Substance: VEDOLIZUMAB
     Indication: CROHN^S DISEASE
     Dosage: 300 MG, UNK
     Route: 042
     Dates: start: 20170810
  2. OMEPRAZOLE. [Concomitant]
     Active Substance: OMEPRAZOLE
     Dosage: UNK
     Dates: start: 201702
  3. LYRICA [Suspect]
     Active Substance: PREGABALIN
     Indication: NEURALGIA
     Dosage: UNK
     Route: 065
     Dates: start: 20180202, end: 20180203
  4. LYRICA [Suspect]
     Active Substance: PREGABALIN
     Indication: BACK PAIN

REACTIONS (7)
  - Sleep apnoea syndrome [Unknown]
  - Neuralgia [Unknown]
  - Fatigue [Not Recovered/Not Resolved]
  - Peripheral swelling [Recovered/Resolved]
  - Rash erythematous [Recovering/Resolving]
  - Arthralgia [Recovering/Resolving]
  - Back pain [Unknown]

NARRATIVE: CASE EVENT DATE: 201712
